FAERS Safety Report 5847214-1 (Version None)
Quarter: 2008Q3

REPORT INFORMATION
  Report Type: 
  Country: None (occurrence: None)
  Receive Date: 20080731
  Receipt Date: 20080617
  Transmission Date: 20090109
  Serious: No
  Sender: FDA-Public Use
  Company Number: US200805005247

PATIENT
  Age: 67 Year
  Sex: Female
  Weight: 64.9 kg

DRUGS (10)
  1. BYETTA [Suspect]
     Indication: TYPE 2 DIABETES MELLITUS
     Dosage: 5 UG, 2/D, SUBCUTANEOUS ; 10 UG, 2/D, SUBCUTANEOUS
     Route: 058
     Dates: start: 20070301, end: 20070401
  2. BYETTA [Suspect]
     Indication: TYPE 2 DIABETES MELLITUS
     Dosage: 5 UG, 2/D, SUBCUTANEOUS ; 10 UG, 2/D, SUBCUTANEOUS
     Route: 058
     Dates: start: 20070401
  3. METFORMIN HCL [Concomitant]
  4. BUMEX [Concomitant]
  5. ALPHAGAN [Concomitant]
  6. XALATAN [Concomitant]
  7. DIOVAN (HYDROCHLOROTHIAZIDE, VALSARTAN) [Concomitant]
  8. VYTORIN [Concomitant]
  9. LEVOXYL [Concomitant]
  10. XANAX [Concomitant]

REACTIONS (7)
  - CARPAL TUNNEL SYNDROME [None]
  - CEREBRAL ISCHAEMIA [None]
  - CONFUSIONAL STATE [None]
  - DRUG DEPENDENCE [None]
  - FEELING JITTERY [None]
  - HEADACHE [None]
  - SPONDYLITIS [None]
